FAERS Safety Report 4463223-1 (Version None)
Quarter: 2004Q3

REPORT INFORMATION
  Report Type: 
  Country: None (occurrence: None)
  Receive Date: 20040930
  Receipt Date: 20040922
  Transmission Date: 20050211
  Serious: Yes (Other)
  Sender: FDA-Public Use
  Company Number: US-JNJFOC-20040405090

PATIENT
  Sex: Female

DRUGS (1)
  1. DURAGESIC [Suspect]
     Route: 062

REACTIONS (1)
  - SUICIDAL IDEATION [None]
